FAERS Safety Report 14026450 (Version 1)
Quarter: 2017Q3

REPORT INFORMATION
  Report Type: Spontaneous
  Country: US (occurrence: US)
  Receive Date: 20170929
  Receipt Date: 20170929
  Transmission Date: 20171128
  Serious: Yes (Other)
  Sender: FDA-Public Use
  Company Number: US-MALLINCKRODT-T201703927

PATIENT
  Sex: Female

DRUGS (1)
  1. H.P. ACTHAR [Suspect]
     Active Substance: CORTICOTROPIN
     Indication: SARCOIDOSIS
     Dosage: UNK
     Route: 065
     Dates: start: 20170724

REACTIONS (6)
  - Sarcoidosis [Unknown]
  - Chest pain [Unknown]
  - Condition aggravated [Unknown]
  - Weight increased [Unknown]
  - Drug ineffective [Unknown]
  - Dyspnoea [Unknown]
